FAERS Safety Report 8019469-9 (Version None)
Quarter: 2012Q1

REPORT INFORMATION
  Report Type: 
  Country: None (occurrence: None)
  Receive Date: 20120103
  Receipt Date: 20111229
  Transmission Date: 20120608
  Serious: Yes (Death)
  Sender: FDA-Public Use
  Company Number: PHEH2011US012814

PATIENT
  Sex: Male

DRUGS (4)
  1. GLEEVEC [Suspect]
     Dosage: 400 MG, DAILY
     Route: 048
  2. ATENOLOL [Concomitant]
     Dosage: 100 MG, UNK
  3. HYDROCHLOROTHIAZIDE [Concomitant]
  4. ALLOPURINOL [Concomitant]
     Dosage: 300 MG, UNK

REACTIONS (1)
  - DEATH [None]
